FAERS Safety Report 7725682-8 (Version None)
Quarter: 2011Q3

REPORT INFORMATION
  Report Type: 
  Country: None (occurrence: None)
  Receive Date: 20110902
  Receipt Date: 20110818
  Transmission Date: 20111222
  Serious: Yes (Other)
  Sender: FDA-Public Use
  Company Number: PHHY2011FR27420

PATIENT
  Age: 71 Year
  Sex: Female
  Weight: 53 kg

DRUGS (4)
  1. SIMVASTATIN [Concomitant]
     Dosage: UNK UKN, UNK
  2. ZOLEDRONOC ACID [Suspect]
     Indication: OSTEOPOROSIS POSTMENOPAUSAL
     Dosage: UNK UKN, UNK
     Route: 042
     Dates: start: 20100101
  3. ADVIL LIQUI-GELS [Suspect]
     Indication: HEADACHE
     Dosage: UNK UKN, UNK
  4. PLAVIX [Concomitant]
     Dosage: UNK UKN, UNK

REACTIONS (10)
  - RENAL ARTERY STENOSIS [None]
  - ARTERIOSCLEROSIS [None]
  - CREATININE RENAL CLEARANCE DECREASED [None]
  - RETINOPATHY HYPERTENSIVE [None]
  - RENAL ARTERIOSCLEROSIS [None]
  - OCULAR DISCOMFORT [None]
  - BLOOD CREATININE INCREASED [None]
  - OCULAR HYPERTENSION [None]
  - ANGIOPATHY [None]
  - RENAL FAILURE [None]
